FAERS Safety Report 17168684 (Version 1)
Quarter: 2019Q4

REPORT INFORMATION
  Report Type: Spontaneous
  Country: PL (occurrence: PL)
  Receive Date: 20191218
  Receipt Date: 20191218
  Transmission Date: 20200122
  Serious: Yes (Other)
  Sender: FDA-Public Use
  Company Number: PL-ACCORD-166072

PATIENT
  Age: 42 Year
  Sex: Female
  Weight: 58 kg

DRUGS (6)
  1. OXALIPLATIN ACCORD [Suspect]
     Active Substance: OXALIPLATIN
     Indication: COLON CANCER
     Route: 042
     Dates: start: 20191129, end: 20191129
  2. DEMEZON [Concomitant]
     Indication: COLON CANCER
     Route: 042
     Dates: start: 20191129, end: 20191129
  3. LEVOFOLIC MEDAC [Concomitant]
     Indication: COLON CANCER
     Route: 042
     Dates: start: 20191129, end: 20191130
  4. ONDANSETRON ACCORD [Concomitant]
     Active Substance: ONDANSETRON
     Indication: COLON CANCER
     Route: 042
     Dates: start: 20191129, end: 20191129
  5. FLUOROURACIL MEDAC [Concomitant]
     Active Substance: FLUOROURACIL
     Indication: COLON CANCER
     Route: 042
     Dates: start: 20191129, end: 20191130
  6. FLUOROURACIL MEDAC [Concomitant]
     Active Substance: FLUOROURACIL
     Indication: COLON CANCER
     Route: 042
     Dates: start: 20191129, end: 20191129

REACTIONS (3)
  - Rash [Recovered/Resolved]
  - Infusion related reaction [Recovered/Resolved]
  - Asthenia [Recovered/Resolved]
